FAERS Safety Report 24273960 (Version 3)
Quarter: 2024Q4

REPORT INFORMATION
  Report Type: Spontaneous
  Country: CA (occurrence: CA)
  Receive Date: 20240902
  Receipt Date: 20241106
  Transmission Date: 20250114
  Serious: Yes (Other)
  Sender: PFIZER
  Company Number: CA-PFIZER INC-PV202400084811

PATIENT
  Age: 71 Year
  Sex: Male

DRUGS (1)
  1. LORBRENA [Suspect]
     Active Substance: LORLATINIB
     Indication: Non-small cell lung cancer
     Dosage: 100 MG, 1X/DAY (ONCE DAILY)
     Route: 048
     Dates: start: 20240710

REACTIONS (16)
  - Hallucination [Unknown]
  - Fall [Unknown]
  - Therapeutic response unexpected [Unknown]
  - Hypoaesthesia [Unknown]
  - Constipation [Unknown]
  - Vision blurred [Unknown]
  - Photopsia [Unknown]
  - Amnesia [Unknown]
  - Metamorphopsia [Unknown]
  - Euphoric mood [Unknown]
  - Tongue disorder [Unknown]
  - Asthenia [Unknown]
  - Polyuria [Unknown]
  - Disorientation [Unknown]
  - Dizziness [Unknown]
  - Sleep disorder [Unknown]

NARRATIVE: CASE EVENT DATE: 20240101
